FAERS Safety Report 15015321 (Version 2)
Quarter: 2018Q3

REPORT INFORMATION
  Report Type: Report from Study
  Country: BE (occurrence: BE)
  Receive Date: 20180615
  Receipt Date: 20180705
  Transmission Date: 20181010
  Serious: Yes (Other)
  Sender: FDA-Public Use
  Company Number: BE-BAYER-2018-099492

PATIENT
  Sex: Male

DRUGS (12)
  1. NEURONTIN [Concomitant]
     Active Substance: GABAPENTIN
  2. ADVAGRAF [Concomitant]
     Active Substance: TACROLIMUS
  3. QUESTRAN [Concomitant]
     Active Substance: CHOLESTYRAMINE
  4. TAMSULOSIN [Concomitant]
     Active Substance: TAMSULOSIN
  5. INNOHEP [Concomitant]
     Active Substance: TINZAPARIN SODIUM
  6. URSOFALK [Concomitant]
     Active Substance: URSODIOL
  7. AMLOR [Concomitant]
     Active Substance: AMLODIPINE BESYLATE
  8. PANTOPRAZOLE SODIUM. [Concomitant]
     Active Substance: PANTOPRAZOLE SODIUM
  9. STIVARGA [Suspect]
     Active Substance: REGORAFENIB
     Indication: HEPATOCELLULAR CARCINOMA
     Dosage: DAILY DOSE 80 MG
     Dates: start: 20180505, end: 20180627
  10. COVERSYL [Concomitant]
     Active Substance: PERINDOPRIL
  11. CONTRAMAL [Concomitant]
     Active Substance: TRAMADOL HYDROCHLORIDE
  12. NOVOMIX [INSULIN ASPART] [Concomitant]
     Active Substance: INSULIN ASPART

REACTIONS (6)
  - Back pain [Not Recovered/Not Resolved]
  - Decreased appetite [Not Recovered/Not Resolved]
  - Balance disorder [Not Recovered/Not Resolved]
  - Hepatocellular carcinoma [None]
  - Meniere^s disease [Not Recovered/Not Resolved]
  - Weight decreased [Not Recovered/Not Resolved]

NARRATIVE: CASE EVENT DATE: 20180605
